FAERS Safety Report 6265526-7 (Version None)
Quarter: 2009Q3

REPORT INFORMATION
  Report Type: 
  Country: None (occurrence: None)
  Receive Date: 20090709
  Receipt Date: 20090709
  Transmission Date: 20100115
  Serious: No
  Sender: FDA-Public Use
  Company Number: None

PATIENT
  Age: 71 Year
  Sex: Female
  Weight: 79.3795 kg

DRUGS (1)
  1. NITROFURANTOIN-MACRO 100 MG  EONLB [Suspect]
     Indication: CYSTITIS
     Dosage: 1 CAPSULE DAILY PO
     Route: 048
     Dates: start: 20090627, end: 20090627

REACTIONS (4)
  - ARTHRALGIA [None]
  - NAUSEA [None]
  - SYNCOPE [None]
  - TREMOR [None]
